FAERS Safety Report 24247925 (Version 1)
Quarter: 2024Q3

REPORT INFORMATION
  Report Type: Spontaneous
  Country: FR (occurrence: FR)
  Receive Date: 20240826
  Receipt Date: 20240826
  Transmission Date: 20241017
  Serious: Yes (Hospitalization, Other)
  Sender: CHEPLAPHARM
  Company Number: None

PATIENT
  Age: 81 Year
  Sex: Female
  Weight: 73 kg

DRUGS (12)
  1. PREDNISONE [Suspect]
     Active Substance: PREDNISONE
     Indication: Renal transplant
     Dosage: DAILY DOSE: 10 MILLIGRAM
     Route: 048
     Dates: start: 1998
  2. VALGANCICLOVIR [Suspect]
     Active Substance: VALGANCICLOVIR
     Dosage: 450
  3. CELLCEPT [Suspect]
     Active Substance: MYCOPHENOLATE MOFETIL
     Indication: Renal transplant
     Dosage: 1 G/5 ML, 750 MORNING AND EVENING/POWDER FOR DRINKABLE SUSPENSION?DAILY DOSE: 1500 MILLIGRAM
     Route: 048
     Dates: start: 1998
  4. EVUSHELD [Suspect]
     Active Substance: CILGAVIMAB\TIXAGEVIMAB
     Indication: COVID-19 prophylaxis
     Dosage: 150MG/150MG
     Route: 042
     Dates: start: 20220209, end: 20220209
  5. CASIRIVIMAB\IMDEVIMAB [Suspect]
     Active Substance: CASIRIVIMAB\IMDEVIMAB
     Indication: COVID-19 prophylaxis
     Dosage: 600MG/600MG/DILUTABLE SOLUTION FOR INTRAVENOUS INFUSION OR SOLUTION FOR SUBCUTANEOUS INJECTION
     Route: 042
     Dates: start: 20211210, end: 20211210
  6. XARELTO [Suspect]
     Active Substance: RIVAROXABAN
     Dosage: 20
  7. TRIBASIC CALCIUM PHOSPHATE [Suspect]
     Active Substance: TRIBASIC CALCIUM PHOSPHATE
     Dosage: 500
  8. ATENOLOL [Suspect]
     Active Substance: ATENOLOL
     Dosage: 100
  9. PERINDOPRIL [Suspect]
     Active Substance: PERINDOPRIL
     Dosage: 4
  10. COMIRNATY [Suspect]
     Active Substance: BNT162B2 OMICRON (KP.2)
     Dosage: D1
     Dates: start: 20210426
  11. COMIRNATY [Suspect]
     Active Substance: BNT162B2 OMICRON (KP.2)
     Dosage: D2
     Dates: start: 20210525
  12. COMIRNATY [Suspect]
     Active Substance: BNT162B2 OMICRON (KP.2)
     Dosage: D2
     Dates: start: 20210624

REACTIONS (4)
  - Drug ineffective [Recovered/Resolved]
  - Left ventricular failure [Unknown]
  - Melaena [Unknown]
  - Escherichia urinary tract infection [Unknown]

NARRATIVE: CASE EVENT DATE: 20220314
